FAERS Safety Report 10501229 (Version 1)
Quarter: 2014Q4

REPORT INFORMATION
  Report Type: Spontaneous
  Country: US (occurrence: None)
  Receive Date: 20141006
  Receipt Date: 20141006
  Transmission Date: 20150528
  Serious: Yes (Other)
  Sender: FDA-Public Use
  Company Number: None

PATIENT
  Age: 47 Year
  Sex: Female
  Weight: 80.74 kg

DRUGS (1)
  1. VENLAFAXINE [Suspect]
     Active Substance: VENLAFAXINE HYDROCHLORIDE
     Indication: DEPRESSION
     Dosage: 1 PO QD X 2 WEEKS
     Route: 048
     Dates: start: 20140820, end: 20140929

REACTIONS (6)
  - Nervousness [None]
  - Product substitution issue [None]
  - Agitation [None]
  - Anxiety [None]
  - Condition aggravated [None]
  - Nausea [None]

NARRATIVE: CASE EVENT DATE: 20140820
